FAERS Safety Report 7680876-5 (Version None)
Quarter: 2011Q3

REPORT INFORMATION
  Report Type: 
  Country: None (occurrence: None)
  Receive Date: 20110812
  Receipt Date: 20110804
  Transmission Date: 20111222
  Serious: Yes (Hospitalization)
  Sender: FDA-Public Use
  Company Number: US-MERCK-1108USA00714

PATIENT
  Sex: Female

DRUGS (1)
  1. SINGULAIR [Suspect]
     Indication: ASTHMA
     Route: 048
     Dates: start: 20000101

REACTIONS (3)
  - PREMATURE LABOUR [None]
  - MATERNAL EXPOSURE BEFORE PREGNANCY [None]
  - PLACENTAL DISORDER [None]
